FAERS Safety Report 6229662-3 (Version None)
Quarter: 2009Q2

REPORT INFORMATION
  Report Type: 
  Country: None (occurrence: None)
  Receive Date: 20090615
  Receipt Date: 20090608
  Transmission Date: 20091009
  Serious: Yes (Other)
  Sender: FDA-Public Use
  Company Number: B0578185A

PATIENT
  Age: 81 Year
  Sex: Male

DRUGS (1)
  1. VALTREX [Suspect]
     Indication: HERPES ZOSTER
     Dosage: 500MG PER DAY
     Route: 048

REACTIONS (3)
  - ENCEPHALOPATHY [None]
  - HEADACHE [None]
  - QUADRIPLEGIA [None]
